FAERS Safety Report 5076103-8 (Version None)
Quarter: 2006Q3

REPORT INFORMATION
  Report Type: 
  Country: None (occurrence: None)
  Receive Date: 20060804
  Receipt Date: 20060721
  Transmission Date: 20061208
  Serious: No
  Sender: FDA-Public Use
  Company Number: 2006-142046-NL

PATIENT
  Age: 44 Year
  Sex: Female

DRUGS (5)
  1. VECURONIUM BROMIDE [Suspect]
     Indication: ANAESTHESIA
     Dosage: 5 MG ONCE, INTRAVENOUS NOS
     Route: 042
     Dates: start: 20060426, end: 20060426
  2. PROPOFOL [Suspect]
     Indication: ANAESTHESIA
     Dosage: 150 MG ONCE, INTRAVENOUS NOS
     Route: 042
     Dates: start: 20060426, end: 20060426
  3. SEVOFLURANE [Suspect]
     Indication: ANAESTHESIA
     Dosage: RESPIRATORY (INHALATION)
     Route: 055
     Dates: start: 20060426, end: 20060426
  4. DIAZEPAM [Concomitant]
  5. ATROPINE [Concomitant]

REACTIONS (4)
  - ANAPHYLACTIC SHOCK [None]
  - HYPOTENSION [None]
  - RESPIRATORY DISORDER [None]
  - TACHYCARDIA [None]
